FAERS Safety Report 6010474-0 (Version None)
Quarter: 2008Q4

REPORT INFORMATION
  Report Type: 
  Country: None (occurrence: None)
  Receive Date: 20081218
  Receipt Date: 20081212
  Transmission Date: 20090506
  Serious: Yes (Other)
  Sender: FDA-Public Use
  Company Number: US-BAYER-200836323NA

PATIENT
  Age: 24 Year
  Sex: Female
  Weight: 57 kg

DRUGS (1)
  1. MIRENA [Suspect]
     Indication: CONTRACEPTION
     Route: 015
     Dates: start: 20060918, end: 20081019

REACTIONS (5)
  - AMENORRHOEA [None]
  - METRORRHAGIA [None]
  - OVARIAN CYST [None]
  - PELVIC PAIN [None]
  - UTERINE RUPTURE [None]
